FAERS Safety Report 9698098 (Version 2)
Quarter: 2013Q4

REPORT INFORMATION
  Report Type: Report from Study
  Country: NL (occurrence: NL)
  Receive Date: 20131120
  Receipt Date: 20131217
  Transmission Date: 20140711
  Serious: Yes (Other)
  Sender: FDA-Public Use
  Company Number: NL-CELGENEUS-114-21880-13111346

PATIENT
  Age: 68 Year
  Sex: Male
  Weight: 60 kg

DRUGS (6)
  1. REVLIMID [Suspect]
     Indication: MYELODYSPLASTIC SYNDROME
     Dosage: 10 MILLIGRAM
     Route: 048
     Dates: start: 20101123, end: 20110405
  2. REVLIMID [Suspect]
     Dosage: 5 MILLIGRAM
     Route: 048
     Dates: start: 20110505, end: 20111005
  3. EPREX [Concomitant]
     Indication: ANAEMIA
     Dosage: 30000 IU (INTERNATIONAL UNIT)
     Route: 058
     Dates: start: 20131025, end: 20131030
  4. EPREX [Concomitant]
     Dosage: 30000 IU (INTERNATIONAL UNIT)
     Route: 058
     Dates: start: 20130927, end: 20131001
  5. NEORECORMON [Concomitant]
     Indication: ANAEMIA
     Dosage: 10000 IU (INTERNATIONAL UNIT)
     Route: 058
     Dates: start: 20131001, end: 20131018
  6. NEORECORMON [Concomitant]
     Dosage: 10000 IU (INTERNATIONAL UNIT)
     Route: 058
     Dates: start: 20130730

REACTIONS (1)
  - Hypergammaglobulinaemia benign monoclonal [Not Recovered/Not Resolved]
